FAERS Safety Report 11101419 (Version 2)
Quarter: 2020Q3

REPORT INFORMATION
  Report Type: Report from Study
  Country: IE (occurrence: IE)
  Receive Date: 20150508
  Receipt Date: 20150525
  Transmission Date: 20201104
  Serious: Yes (Death)
  Sender: FDA-Public Use
  Company Number: PHFR2015IE003610

PATIENT
  Sex: Female

DRUGS (2)
  1. ALECTINIB. [Suspect]
     Active Substance: ALECTINIB
     Indication: LUNG NEOPLASM MALIGNANT
     Dosage: 600 MG, BID
     Route: 048
     Dates: start: 20150423, end: 20150425
  2. LDK378 [Suspect]
     Active Substance: CERITINIB
     Indication: LUNG NEOPLASM MALIGNANT
     Route: 065

REACTIONS (4)
  - Malignant neoplasm progression [Fatal]
  - Metastases to central nervous system [Fatal]
  - Malaise [Unknown]
  - Lung neoplasm malignant [Fatal]
